FAERS Safety Report 6774117-0 (Version None)
Quarter: 2010Q2

REPORT INFORMATION
  Report Type: 
  Country: None (occurrence: None)
  Receive Date: 20100520
  Receipt Date: 20090331
  Transmission Date: 20101027
  Serious: Yes (Disabling, Other)
  Sender: FDA-Public Use
  Company Number: 2007028935

PATIENT
  Age: 49 Year
  Sex: Female
  Weight: 86 kg

DRUGS (4)
  1. PROVERA [Suspect]
     Indication: HORMONE REPLACEMENT THERAPY
     Dosage: 5 MG, ORAL
     Route: 048
     Dates: start: 19960101, end: 19990101
  2. PREMARIN [Suspect]
     Indication: HORMONE REPLACEMENT THERAPY
     Dosage: 0.625/5MG
     Dates: start: 19970101, end: 20010101
  3. ORTHO-EST [Suspect]
     Indication: MENOPAUSE
     Dosage: 0.625 MG
     Dates: start: 19990101
  4. MEDROXYPROGESTERONE [Suspect]
     Indication: MENOPAUSE
     Dosage: 5 MG
     Dates: start: 20000101, end: 20010101

REACTIONS (1)
  - BREAST CANCER FEMALE [None]
